FAERS Safety Report 4578853-6 (Version None)
Quarter: 2005Q1

REPORT INFORMATION
  Report Type: 
  Country: None (occurrence: None)
  Receive Date: 20050211
  Receipt Date: 20050127
  Transmission Date: 20050727
  Serious: Yes (Death, Life-Threatening, Hospitalization)
  Sender: FDA-Public Use
  Company Number: CH-2005-BP-01507PF

PATIENT
  Sex: Male

DRUGS (7)
  1. SPIRIVA [Suspect]
     Indication: SILICOSIS
     Route: 055
     Dates: start: 20041025, end: 20041025
  2. ALDACTONE [Concomitant]
     Route: 048
  3. LASIX [Concomitant]
  4. SYMBICORT [Concomitant]
  5. ATROVENT [Concomitant]
  6. RENITEN [Concomitant]
  7. MARCOUMAR [Concomitant]

REACTIONS (2)
  - ABDOMINAL PAIN [None]
  - DEATH [None]
